FAERS Safety Report 23858453 (Version 3)
Quarter: 2024Q2

REPORT INFORMATION
  Report Type: Spontaneous
  Country: PL (occurrence: PL)
  Receive Date: 20240515
  Receipt Date: 20240625
  Transmission Date: 20240716
  Serious: Yes (Death, Other)
  Sender: FDA-Public Use
  Company Number: PL-GILEAD-2024-0672776

PATIENT
  Age: 33 Year
  Sex: Male

DRUGS (3)
  1. YESCARTA [Suspect]
     Active Substance: AXICABTAGENE CILOLEUCEL
     Indication: Primary mediastinal large B-cell lymphoma
     Dosage: UNK
     Route: 042
     Dates: start: 20231121, end: 20231121
  2. FLUDARABINE [Concomitant]
     Active Substance: FLUDARABINE PHOSPHATE
  3. CYCLOPHOSPHAMIDE [Concomitant]
     Active Substance: CYCLOPHOSPHAMIDE

REACTIONS (3)
  - Death [Fatal]
  - Disease progression [Unknown]
  - Cytokine release syndrome [Unknown]

NARRATIVE: CASE EVENT DATE: 20231208
